FAERS Safety Report 6326022-1 (Version None)
Quarter: 2009Q3

REPORT INFORMATION
  Report Type: 
  Country: None (occurrence: None)
  Receive Date: 20090824
  Receipt Date: 20090810
  Transmission Date: 20100115
  Serious: Yes (Hospitalization)
  Sender: FDA-Public Use
  Company Number: SG-TYCO HEALTHCARE/MALLINCKRODT-T200901526

PATIENT
  Age: 42 Year
  Sex: Female

DRUGS (7)
  1. FLUOXETINE [Suspect]
     Dosage: 20 MG, OM (EVERY MORNING)
     Route: 048
  2. EPILIM CHRONO [Suspect]
     Dosage: 300 MG, BD
     Route: 048
  3. PARACETAMOL [Suspect]
     Dosage: 3 G, SINGLE
     Route: 048
  4. MAMA LEMON DISHWASHING DETERGENT [Suspect]
     Dosage: UNK, SINGLE
     Route: 048
  5. DYNAMO LAUNDRY DETERGENT [Suspect]
     Dosage: 80 ML, SINGLE
     Route: 048
  6. FOLIC ACID [Concomitant]
     Dosage: 5 MG, OM (EVERY MORNING)
  7. LORAZEPAM [Concomitant]
     Dosage: 1 MG, ON, PRN

REACTIONS (4)
  - EXTERNAL EAR INFLAMMATION [None]
  - GASTROINTESTINAL DISORDER [None]
  - PYREXIA [None]
  - RENAL FAILURE ACUTE [None]
